FAERS Safety Report 13149613 (Version 7)
Quarter: 2017Q2

REPORT INFORMATION
  Report Type: Report from Study
  Country: CA (occurrence: CA)
  Receive Date: 20170125
  Receipt Date: 20170509
  Transmission Date: 20170830
  Serious: Yes (Other)
  Sender: FDA-Public Use
  Company Number: CA-TAKEDA-2016TUS001940

PATIENT
  Age: 67 Year
  Sex: Male

DRUGS (5)
  1. TYLENOL [Concomitant]
     Active Substance: ACETAMINOPHEN
     Indication: PREMEDICATION
     Dosage: 650 MG, UNK
     Route: 048
  2. COUMADIN [Concomitant]
     Active Substance: WARFARIN SODIUM
     Dosage: UNK
  3. PREDNISONE. [Concomitant]
     Active Substance: PREDNISONE
     Dosage: 10 MG, QD
  4. VEDOLIZUMAB [Suspect]
     Active Substance: VEDOLIZUMAB
     Indication: COLITIS ULCERATIVE
     Dosage: 300 MG, UNK
     Route: 042
     Dates: start: 20160120, end: 20170223
  5. BUDESONIDE. [Concomitant]
     Active Substance: BUDESONIDE
     Dosage: 12 MG, QD

REACTIONS (6)
  - Bone pain [Unknown]
  - Neurological symptom [Unknown]
  - Fatigue [Unknown]
  - Ankylosing spondylitis [Not Recovered/Not Resolved]
  - Arthritis [Unknown]
  - Nausea [Unknown]

NARRATIVE: CASE EVENT DATE: 2016
